FAERS Safety Report 7991238-5 (Version None)
Quarter: 2011Q4

REPORT INFORMATION
  Report Type: 
  Country: None (occurrence: None)
  Receive Date: 20111219
  Receipt Date: 20111101
  Transmission Date: 20120403
  Serious: Yes (Hospitalization)
  Sender: FDA-Public Use
  Company Number: JP-GLAXOSMITHKLINE-B0760600A

PATIENT
  Sex: Female
  Weight: 45 kg

DRUGS (5)
  1. DILTIAZEM HCL [Concomitant]
     Indication: HYPERTENSION
     Dosage: 100MG PER DAY
     Route: 048
  2. ANAFRANIL [Concomitant]
     Dosage: 20MG PER DAY
     Route: 048
  3. DIAZEPAM [Concomitant]
     Dosage: 5MG PER DAY
     Route: 048
  4. VESICARE [Concomitant]
     Indication: HYPERTONIC BLADDER
     Dosage: 5MG PER DAY
     Route: 048
  5. VALTREX [Suspect]
     Indication: HERPES ZOSTER
     Dosage: 3000MG PER DAY
     Route: 048
     Dates: start: 20111028, end: 20111029

REACTIONS (6)
  - RENAL IMPAIRMENT [None]
  - GAIT DISTURBANCE [None]
  - BLOOD URIC ACID INCREASED [None]
  - DYSARTHRIA [None]
  - BLOOD CREATININE INCREASED [None]
  - BLOOD UREA INCREASED [None]
